FAERS Safety Report 4874913-0 (Version None)
Quarter: 2006Q1

REPORT INFORMATION
  Report Type: 
  Country: None (occurrence: None)
  Receive Date: 20060104
  Receipt Date: 20051222
  Transmission Date: 20060701
  Serious: Yes (Death, Hospitalization, Other)
  Sender: FDA-Public Use
  Company Number: 2005111183

PATIENT
  Sex: Female

DRUGS (2)
  1. VIAGRA [Suspect]
     Indication: PULMONARY HYPERTENSION
     Dates: start: 20050601, end: 20050806
  2. DIURETICS (DIURETICS) [Concomitant]

REACTIONS (7)
  - CONDITION AGGRAVATED [None]
  - FALL [None]
  - PULMONARY HYPERTENSION [None]
  - RESPIRATORY ARREST [None]
  - RIGHT VENTRICULAR FAILURE [None]
  - SEDATION [None]
  - SYNCOPE [None]
